FAERS Safety Report 7268700-6 (Version None)
Quarter: 2011Q1

REPORT INFORMATION
  Report Type: 
  Country: None (occurrence: None)
  Receive Date: 20110121
  Receipt Date: 20110118
  Transmission Date: 20110831
  Serious: Yes (Other)
  Sender: FDA-Public Use
  Company Number: 2010SP057562

PATIENT
  Age: 2 Week
  Sex: Female

DRUGS (1)
  1. MUSCULEX (VECURONIUM BROMIDE / 00600002/ ) [Suspect]
     Indication: NEUROMUSCULAR BLOCKING THERAPY
     Dosage: ; IV
     Route: 042

REACTIONS (3)
  - PO2 DECREASED [None]
  - TUMOUR COMPRESSION [None]
  - CONDITION AGGRAVATED [None]
